FAERS Safety Report 15231962 (Version 1)
Quarter: 2018Q3

REPORT INFORMATION
  Report Type: Spontaneous
  Country: US (occurrence: US)
  Receive Date: 20180708
  Receipt Date: 20180708
  Transmission Date: 20181010
  Serious: No
  Sender: FDA-Public Use
  Company Number: None

PATIENT
  Age: 42 Year
  Sex: Male

DRUGS (1)
  1. TACROLIMUS CAP 0.5 [Suspect]
     Active Substance: TACROLIMUS
     Dates: start: 20170324, end: 20180708

REACTIONS (1)
  - Off label use [None]

NARRATIVE: CASE EVENT DATE: 20180708
